FAERS Safety Report 15712172 (Version 1)
Quarter: 2018Q4

REPORT INFORMATION
  Report Type: Spontaneous
  Country: CN (occurrence: CN)
  Receive Date: 20181212
  Receipt Date: 20181212
  Transmission Date: 20190205
  Serious: Yes (Other)
  Sender: FDA-Public Use
  Company Number: CN-ROCHE-2228881

PATIENT
  Sex: Male

DRUGS (1)
  1. LUCENTIS [Suspect]
     Active Substance: RANIBIZUMAB
     Indication: NEOVASCULAR AGE-RELATED MACULAR DEGENERATION
     Route: 031
     Dates: start: 20181130, end: 20181130

REACTIONS (2)
  - Visual impairment [Not Recovered/Not Resolved]
  - Necrotising retinitis [Not Recovered/Not Resolved]

NARRATIVE: CASE EVENT DATE: 20181201
